FAERS Safety Report 8176556-2 (Version None)
Quarter: 2012Q1

REPORT INFORMATION
  Report Type: 
  Country: None (occurrence: None)
  Receive Date: 20120228
  Receipt Date: 20120217
  Transmission Date: 20120608
  Serious: Yes (Hospitalization, Other)
  Sender: FDA-Public Use
  Company Number: ADR-2012-00395

PATIENT
  Sex: Male

DRUGS (2)
  1. LIORESAL [Suspect]
     Indication: DRUG THERAPY
     Dosage: 439.6 MCG/DAY
  2. LIORESAL [Suspect]
     Indication: MULTIPLE SCLEROSIS
     Dosage: 439.6 MCG/DAY

REACTIONS (5)
  - FLUSHING [None]
  - DIZZINESS [None]
  - IMPLANT SITE SWELLING [None]
  - WITHDRAWAL SYNDROME [None]
  - WRONG TECHNIQUE IN DRUG USAGE PROCESS [None]
